FAERS Safety Report 8144757-5 (Version None)
Quarter: 2012Q1

REPORT INFORMATION
  Report Type: 
  Country: None (occurrence: None)
  Receive Date: 20120217
  Receipt Date: 20120213
  Transmission Date: 20120608
  Serious: Yes (Death, Hospitalization)
  Sender: FDA-Public Use
  Company Number: US-GENZYME-MOZO-1000647

PATIENT
  Sex: Male

DRUGS (12)
  1. ACYCLOVIR [Concomitant]
     Indication: ANTIVIRAL PROPHYLAXIS
     Dosage: 300 MG, UNK
     Route: 048
     Dates: start: 20111212, end: 20111214
  2. CIDOFOVIR [Concomitant]
     Indication: ANTIVIRAL TREATMENT
     Dosage: 100 MG, UNK
     Route: 042
     Dates: start: 20111209, end: 20111214
  3. FLUDARA [Concomitant]
     Indication: BONE MARROW CONDITIONING REGIMEN
     Dosage: UNK
     Route: 065
  4. THIOTEPA [Concomitant]
     Indication: BONE MARROW CONDITIONING REGIMEN
     Dosage: UNK
     Route: 065
  5. ZOFRAN [Concomitant]
     Indication: ANTIEMETIC SUPPORTIVE CARE
     Dosage: 4 MG, UNK
     Route: 048
     Dates: start: 20111212, end: 20120117
  6. MELPHALAN HYDROCHLORIDE [Concomitant]
     Indication: BONE MARROW CONDITIONING REGIMEN
     Dosage: UNK
     Route: 065
  7. MICAFUNGIN [Concomitant]
     Indication: ANTIFUNGAL PROPHYLAXIS
     Dosage: 20 MG, UNK
     Route: 042
     Dates: start: 20111013, end: 20111015
  8. DEXAMETHASONE [Concomitant]
     Indication: STEROID THERAPY
     Dosage: 2 MG, UNK
     Route: 042
     Dates: start: 20111213, end: 20120117
  9. MOZOBIL [Suspect]
     Indication: BONE MARROW CONDITIONING REGIMEN
     Dosage: 5 MG, QD
     Route: 042
     Dates: start: 20111011, end: 20111012
  10. MOZOBIL [Suspect]
     Indication: ACUTE LYMPHOCYTIC LEUKAEMIA
  11. AMLODIPINE [Concomitant]
     Indication: HYPERTENSION
     Dosage: 2.5 MG, UNK
     Route: 048
     Dates: start: 20111205, end: 20111215
  12. LEVAQUIN [Concomitant]
     Indication: ANTIBIOTIC THERAPY
     Dosage: 250 MG, UNK
     Route: 048
     Dates: start: 20111212, end: 20111214

REACTIONS (3)
  - ASCITES [None]
  - ACUTE LYMPHOCYTIC LEUKAEMIA [None]
  - PLEURAL EFFUSION [None]
